FAERS Safety Report 4781065-4 (Version None)
Quarter: 2005Q3

REPORT INFORMATION
  Report Type: 
  Country: None (occurrence: None)
  Receive Date: 20050926
  Receipt Date: 20050915
  Transmission Date: 20060218
  Serious: Yes (Hospitalization)
  Sender: FDA-Public Use
  Company Number: STA-AE-05-MTX-022

PATIENT
  Age: 52 Year
  Sex: Female

DRUGS (3)
  1. METHOTREXATE [Suspect]
     Indication: RHEUMATOID ARTHRITIS
     Dosage: 7.5 MG- 1XW - ORAL
     Route: 048
     Dates: start: 20030117
  2. ABATACEPT [Suspect]
     Indication: RHEUMATOID ARTHRITIS
     Dosage: 750 MG - IV
     Route: 042
     Dates: start: 20040504
  3. CORTANCYL        (PREDNISONE ACETATE) [Concomitant]

REACTIONS (1)
  - SUBCUTANEOUS ABSCESS [None]
